FAERS Safety Report 12946757 (Version 1)
Quarter: 2016Q4

REPORT INFORMATION
  Report Type: Spontaneous
  Country: DE (occurrence: DE)
  Receive Date: 20161116
  Receipt Date: 20161116
  Transmission Date: 20170207
  Serious: Yes (Hospitalization, Other)
  Sender: FDA-Public Use
  Company Number: DE-TEVA-710332GER

PATIENT
  Age: 60 Year
  Sex: Male
  Weight: 120 kg

DRUGS (9)
  1. ETOPOSID [Suspect]
     Active Substance: ETOPOSIDE
     Indication: OESOPHAGEAL CANCER METASTATIC
     Route: 042
     Dates: start: 20160920, end: 20160922
  2. METOPROLOL. [Concomitant]
     Active Substance: METOPROLOL
     Dosage: 47.5 MILLIGRAM DAILY;
  3. AMLODIPIN [Concomitant]
     Active Substance: AMLODIPINE BESYLATE
     Dosage: 5 MILLIGRAM DAILY;
  4. NEXIUM [Concomitant]
     Active Substance: ESOMEPRAZOLE MAGNESIUM
     Dosage: 40 MILLIGRAM DAILY;
  5. CISPLATIN. [Suspect]
     Active Substance: CISPLATIN
     Indication: OESOPHAGEAL CANCER METASTATIC
     Route: 042
     Dates: start: 20160920, end: 2016
  6. EBRANTIL [Concomitant]
     Active Substance: URAPIDIL
     Dosage: 30 MILLIGRAM DAILY;
  7. VALSARTAN. [Concomitant]
     Active Substance: VALSARTAN
     Dosage: 120 MILLIGRAM DAILY;
  8. ALISKIREN [Concomitant]
     Active Substance: ALISKIREN
     Dosage: 150 MILLIGRAM DAILY;
  9. HCT [Concomitant]
     Active Substance: HYDROCHLOROTHIAZIDE
     Dosage: 25 MILLIGRAM DAILY;

REACTIONS (6)
  - Conjunctival oedema [Not Recovered/Not Resolved]
  - Vision blurred [Recovering/Resolving]
  - Eye swelling [Not Recovered/Not Resolved]
  - Papilloedema [Not Recovered/Not Resolved]
  - Headache [Recovering/Resolving]
  - Diplopia [Recovering/Resolving]

NARRATIVE: CASE EVENT DATE: 20161002
